FAERS Safety Report 12404450 (Version 1)
Quarter: 2016Q2

REPORT INFORMATION
  Report Type: Report from Study
  Country: US (occurrence: US)
  Receive Date: 20160525
  Receipt Date: 20160525
  Transmission Date: 20160815
  Serious: Yes (Disabling, Other)
  Sender: FDA-Public Use
  Company Number: US-MALLINCKRODT-T201601860

PATIENT
  Sex: Female

DRUGS (2)
  1. REPOSITORY CORTICOTROPIN INJECTION [Suspect]
     Active Substance: CORTICOTROPIN
     Indication: RHEUMATOID ARTHRITIS
     Dosage: 80 UNITS ONCE WEEKLY (TUE)
     Route: 058
     Dates: start: 201508, end: 201601
  2. ACTEMRA [Concomitant]
     Active Substance: TOCILIZUMAB
     Dosage: ONCE MONTHLY INFUSIONS
     Route: 042

REACTIONS (8)
  - Syncope [Unknown]
  - Pain [Not Recovered/Not Resolved]
  - Abasia [Not Recovered/Not Resolved]
  - Back pain [Not Recovered/Not Resolved]
  - Rheumatoid arthritis [Not Recovered/Not Resolved]
  - Gastrooesophageal reflux disease [Not Recovered/Not Resolved]
  - Cough [Not Recovered/Not Resolved]
  - Feeling abnormal [Unknown]

NARRATIVE: CASE EVENT DATE: 2015
